FAERS Safety Report 6438796-X (Version None)
Quarter: 2009Q4

REPORT INFORMATION
  Report Type: 
  Country: None (occurrence: None)
  Receive Date: 20091113
  Receipt Date: 20091105
  Transmission Date: 20100525
  Serious: Yes (Other)
  Sender: FDA-Public Use
  Company Number: US-JNJFOC-20091102134

PATIENT
  Sex: Female

DRUGS (1)
  1. ORTHO TRI-CYCLEN LO [Suspect]
     Indication: CONTRACEPTION
     Route: 065

REACTIONS (5)
  - BREAST PAIN [None]
  - DRUG DOSE OMISSION [None]
  - FUNGAL INFECTION [None]
  - INFECTIOUS MONONUCLEOSIS [None]
  - PAIN [None]
